FAERS Safety Report 8827556 (Version 1)
Quarter: 2012Q4

REPORT INFORMATION
  Report Type: 
  Country: US (occurrence: US)
  Receive Date: 20121005
  Receipt Date: 20121005
  Transmission Date: 20130627
  Serious: Yes (Hospitalization, Other)
  Sender: FDA-Public Use
  Company Number: US-ELI_LILLY_AND_COMPANY-US201209007087

PATIENT
  Sex: Male

DRUGS (3)
  1. HUMALOG LISPRO [Suspect]
     Route: 058
  2. LANTUS [Concomitant]
     Indication: TYPE 1 DIABETES MELLITUS
     Dosage: 13 u, unknown
     Route: 058
     Dates: start: 201111
  3. LANTUS [Concomitant]
     Dosage: 16 u, unknown

REACTIONS (5)
  - Cerebrovascular accident [Unknown]
  - Convulsion [Unknown]
  - Hospitalisation [Unknown]
  - Blood glucose abnormal [Unknown]
  - Personality change [Not Recovered/Not Resolved]
